FAERS Safety Report 7248120-0 (Version None)
Quarter: 2011Q1

REPORT INFORMATION
  Report Type: 
  Country: None (occurrence: None)
  Receive Date: 20110127
  Receipt Date: 20110120
  Transmission Date: 20110831
  Serious: Yes (Hospitalization)
  Sender: FDA-Public Use
  Company Number: US-B.I. PHARMACEUTICALS,INC./RIDGEFIELD-2011-BP-01488BP

PATIENT
  Sex: Female
  Weight: 63.5 kg

DRUGS (4)
  1. AMIODARONE HCL [Concomitant]
  2. LASIX [Concomitant]
  3. DIGOXIN [Concomitant]
  4. PRADAXA [Suspect]

REACTIONS (1)
  - GASTROINTESTINAL HAEMORRHAGE [None]
